FAERS Safety Report 18659253 (Version 2)
Quarter: 2021Q4

REPORT INFORMATION
  Report Type: Spontaneous
  Country: US (occurrence: US)
  Receive Date: 20201223
  Receipt Date: 20211229
  Transmission Date: 20220303
  Serious: Yes (Other)
  Sender: FDA-Public Use
  Company Number: US-COOPERSURGICAL, INC.-US-2020CPS002494

PATIENT
  Age: 52 Year
  Sex: Female
  Weight: 48.073 kg

DRUGS (1)
  1. PARAGARD T 380A [Suspect]
     Active Substance: COPPER
     Indication: Product used for unknown indication
     Dosage: UNK
     Route: 015
     Dates: start: 20090721

REACTIONS (9)
  - Device breakage [Not Recovered/Not Resolved]
  - Foreign body in reproductive tract [Not Recovered/Not Resolved]
  - Complication of device removal [Not Recovered/Not Resolved]
  - Menopausal symptoms [Not Recovered/Not Resolved]
  - Abdominal distension [Unknown]
  - Vaginal discharge [Unknown]
  - Abnormal uterine bleeding [Recovered/Resolved]
  - Amenorrhoea [Not Recovered/Not Resolved]
  - Intentional device use issue [Recovered/Resolved]

NARRATIVE: CASE EVENT DATE: 20190722
